FAERS Safety Report 10031343 (Version 1)
Quarter: 2014Q1

REPORT INFORMATION
  Report Type: Spontaneous
  Country: FR (occurrence: FR)
  Receive Date: 20140324
  Receipt Date: 20140324
  Transmission Date: 20141002
  Serious: Yes (Hospitalization, Other)
  Sender: FDA-Public Use
  Company Number: FR-ACCORD-022625

PATIENT
  Age: 35 Year
  Sex: Male

DRUGS (3)
  1. QUETIAPINE [Suspect]
     Indication: ACUTE PSYCHOSIS
     Dosage: DAY 1: 200 MG/DAY; DAY 2: 400 MG/DAY; DAY 3:?600 MG/DAY, ALL DIVIDED AND ADMINISTERED AT TWO TIMES
  2. ZUCLOPENTHIXOL/ZUCLOPENTHIXOL ACETATE/ZUCLOPENTHIXOL DECANOATE/ZUCLOPENTHIXOL HYDROCHLORIDE [Interacting]
     Indication: MENTAL DISORDER
     Dosage: 100 MG/DAY
  3. LITHIUM [Concomitant]
     Indication: MANIA
     Dosage: 800 MG/DAY

REACTIONS (3)
  - Paradoxical drug reaction [Recovered/Resolved]
  - Psychomotor hyperactivity [Recovered/Resolved]
  - Drug interaction [Unknown]
